FAERS Safety Report 7235533-6 (Version None)
Quarter: 2011Q1

REPORT INFORMATION
  Report Type: 
  Country: None (occurrence: None)
  Receive Date: 20110120
  Receipt Date: 20110110
  Transmission Date: 20110831
  Serious: Yes (Hospitalization)
  Sender: FDA-Public Use
  Company Number: PHHY2011DK01915

PATIENT
  Sex: Female
  Weight: 97 kg

DRUGS (4)
  1. ANTABUSE [Concomitant]
     Dosage: 800 MG, QW2
  2. SEROQUEL XR [Concomitant]
     Dosage: 800 MG DAILY
     Route: 048
  3. VENLAFAXINE [Concomitant]
     Dosage: 800 MG DAILY
     Route: 048
  4. LEPONEX [Suspect]
     Indication: PSYCHOTIC DISORDER
     Dosage: 250 MG DAILY
     Route: 048
     Dates: start: 20101029, end: 20101125

REACTIONS (6)
  - WHITE BLOOD CELL COUNT INCREASED [None]
  - DYSPNOEA [None]
  - OEDEMA PERIPHERAL [None]
  - C-REACTIVE PROTEIN INCREASED [None]
  - WEIGHT INCREASED [None]
  - EOSINOPHIL COUNT INCREASED [None]
